FAERS Safety Report 24325667 (Version 2)
Quarter: 2024Q3

REPORT INFORMATION
  Report Type: Spontaneous
  Country: US (occurrence: US)
  Receive Date: 20240917
  Receipt Date: 20240919
  Transmission Date: 20241017
  Serious: No
  Sender: CHATTEM
  Company Number: US-OPELLA-2024OHG031700

PATIENT

DRUGS (1)
  1. SELENIUM SULFIDE [Suspect]
     Active Substance: SELENIUM SULFIDE
     Indication: Product used for unknown indication
     Route: 065

REACTIONS (3)
  - Drug ineffective [Unknown]
  - Product odour abnormal [Unknown]
  - No adverse event [Unknown]
